FAERS Safety Report 18538597 (Version 1)
Quarter: 2020Q4

REPORT INFORMATION
  Report Type: Spontaneous
  Country: US (occurrence: US)
  Receive Date: 20201124
  Receipt Date: 20201124
  Transmission Date: 20210114
  Serious: Yes (Other)
  Sender: FDA-Public Use
  Company Number: NVSC2020US310721

PATIENT

DRUGS (1)
  1. MYCOPHENOLATE MOFETIL. [Suspect]
     Active Substance: MYCOPHENOLATE MOFETIL
     Indication: INTERSTITIAL LUNG DISEASE
     Dosage: 2000 MG, FROM SIX MONTHS TO 5 YEARS
     Route: 065

REACTIONS (3)
  - Condition aggravated [Unknown]
  - Interstitial lung disease [Unknown]
  - Product use in unapproved indication [Unknown]
